FAERS Safety Report 8963883 (Version 1)
Quarter: 2012Q4

REPORT INFORMATION
  Report Type: 
  Country: US (occurrence: US)
  Receive Date: 20121214
  Receipt Date: 20121214
  Transmission Date: 20130627
  Serious: Yes (Hospitalization, Other)
  Sender: FDA-Public Use
  Company Number: US-009507513-1212USA004783

PATIENT
  Sex: Female
  Weight: 89.8 kg

DRUGS (2)
  1. PEG-INTRON [Suspect]
     Indication: HEPATITIS C
     Dosage: UNK
     Dates: start: 20090310, end: 20091101
  2. RIBAVIRIN [Suspect]
     Indication: HEPATITIS C
     Dosage: UNK
     Route: 048
     Dates: start: 20090310, end: 20091101

REACTIONS (5)
  - Aphagia [Unknown]
  - Weight decreased [Unknown]
  - Hepatitis C RNA increased [Unknown]
  - Vomiting [Unknown]
  - Haematology test abnormal [Unknown]
